FAERS Safety Report 4997459-8 (Version None)
Quarter: 2006Q2

REPORT INFORMATION
  Report Type: 
  Country: None (occurrence: None)
  Receive Date: 20060509
  Receipt Date: 20060119
  Transmission Date: 20061013
  Serious: Yes (Hospitalization, Other)
  Sender: FDA-Public Use
  Company Number: US-MERCK-0601USA02589

PATIENT
  Age: 66 Year
  Sex: Female
  Weight: 91 kg

DRUGS (16)
  1. VIOXX [Suspect]
     Indication: ARTHRITIS
     Route: 048
     Dates: start: 20020408, end: 20040301
  2. HYDROCODONE BITARTRATE + ACETAMINOPHEN [Concomitant]
     Route: 065
     Dates: start: 20010807, end: 20040313
  3. ZOCOR [Concomitant]
     Indication: BLOOD CHOLESTEROL INCREASED
     Route: 065
  4. THEOPHYLLINE [Concomitant]
     Indication: ASTHMA
     Route: 065
  5. TEMAZEPAM [Concomitant]
     Indication: ANXIETY
     Route: 065
  6. SYNTHROID [Concomitant]
     Indication: HYPOTHYROIDISM
     Route: 065
  7. FUROSEMIDE [Concomitant]
     Indication: HYPERTENSION
     Route: 065
  8. FUROSEMIDE [Concomitant]
     Indication: OEDEMA
     Route: 065
  9. FLUOXETINE [Concomitant]
     Indication: DEPRESSION
     Route: 065
     Dates: start: 20020401, end: 20050601
  10. ADVAIR DISKUS 100/50 [Concomitant]
     Route: 065
     Dates: start: 20020601, end: 20041201
  11. LASIX [Concomitant]
     Indication: CARDIAC DISORDER
     Route: 065
  12. METHOTREXATE [Concomitant]
     Route: 065
     Dates: start: 20020401, end: 20050501
  13. FOLIC ACID [Concomitant]
     Route: 065
     Dates: start: 20020701, end: 20050601
  14. PATANOL [Concomitant]
     Route: 065
     Dates: start: 20020901
  15. PILOCARPINE [Concomitant]
     Indication: DRY EYE
     Route: 065
  16. ZYRTEC [Concomitant]
     Route: 065

REACTIONS (9)
  - ARTERIOSCLEROSIS [None]
  - CARPAL TUNNEL SYNDROME [None]
  - CEREBROVASCULAR ACCIDENT [None]
  - CHEST PAIN [None]
  - LUMBAR SPINAL STENOSIS [None]
  - MYOCARDIAL INFARCTION [None]
  - PAIN IN EXTREMITY [None]
  - SLEEP APNOEA SYNDROME [None]
  - TRANSIENT ISCHAEMIC ATTACK [None]
